FAERS Safety Report 8125979-6 (Version None)
Quarter: 2012Q1

REPORT INFORMATION
  Report Type: 
  Country: None (occurrence: None)
  Receive Date: 20120209
  Receipt Date: 20120130
  Transmission Date: 20120608
  Serious: Yes (Hospitalization, Other)
  Sender: FDA-Public Use
  Company Number: IE-NOVOPROD-316071

PATIENT
  Age: 5 Year
  Sex: Female
  Weight: 9.8 kg

DRUGS (1)
  1. NORDITROPIN [Suspect]
     Indication: SILVER-RUSSELL SYNDROME
     Dosage: 0.3 MG, QD
     Dates: start: 20090707, end: 20100920

REACTIONS (2)
  - SLEEP APNOEA SYNDROME [None]
  - TONSILLAR HYPERTROPHY [None]
